FAERS Safety Report 4554091-8 (Version None)
Quarter: 2005Q1

REPORT INFORMATION
  Report Type: 
  Country: None (occurrence: None)
  Receive Date: 20050118
  Receipt Date: 20041021
  Transmission Date: 20050727
  Serious: Yes (Life-Threatening, Hospitalization, Other)
  Sender: FDA-Public Use
  Company Number: US-MERCK-0410USA03476

PATIENT
  Age: 72 Year
  Sex: Female
  Weight: 105 kg

DRUGS (15)
  1. CELEBREX [Concomitant]
     Route: 065
  2. BEXTRA [Concomitant]
     Route: 065
  3. LEXAPRO [Concomitant]
     Indication: DEPRESSION
     Route: 048
  4. SYNTHROID [Concomitant]
     Indication: HYPOTHYROIDISM
     Route: 048
  5. ASPIRIN [Concomitant]
     Route: 065
  6. DIABETA [Concomitant]
     Indication: DIABETES MELLITUS NON-INSULIN-DEPENDENT
     Route: 065
  7. FIBERCON [Concomitant]
     Route: 065
  8. COLACE [Concomitant]
     Route: 065
  9. PREVACID [Concomitant]
     Indication: GASTROOESOPHAGEAL REFLUX DISEASE
     Route: 048
  10. RELAFEN [Concomitant]
     Route: 065
  11. EFFEXOR [Concomitant]
     Route: 065
  12. ACIPHEX [Concomitant]
     Route: 065
  13. ZOLOFT [Concomitant]
     Route: 065
  14. VIOXX [Suspect]
     Indication: ARTHRITIS
     Route: 048
     Dates: start: 20010614, end: 20011201
  15. VIOXX [Suspect]
     Route: 048
     Dates: start: 20020228

REACTIONS (37)
  - ABDOMINAL DISTENSION [None]
  - ACUTE SINUSITIS [None]
  - ARTHRALGIA [None]
  - BODY TINEA [None]
  - BRONCHITIS [None]
  - BRONCHOSPASM [None]
  - CARDIOMEGALY [None]
  - CELLULITIS [None]
  - CHEST PAIN [None]
  - CHONDROMALACIA [None]
  - CORONARY ARTERY DISEASE [None]
  - DECUBITUS ULCER [None]
  - DENTAL CARIES [None]
  - DIABETES MELLITUS NON-INSULIN-DEPENDENT [None]
  - DIZZINESS [None]
  - DYSPNOEA [None]
  - DYSURIA [None]
  - FATIGUE [None]
  - FLANK PAIN [None]
  - HEADACHE [None]
  - HERPES ZOSTER [None]
  - HIATUS HERNIA [None]
  - MEMORY IMPAIRMENT [None]
  - MENISCUS LESION [None]
  - MUSCLE SPASMS [None]
  - ORTHOPNOEA [None]
  - ORTHOSTATIC HYPOTENSION [None]
  - OTITIS MEDIA [None]
  - RADICULITIS LUMBOSACRAL [None]
  - RASH [None]
  - RHINITIS [None]
  - STAPHYLOCOCCAL INFECTION [None]
  - TINNITUS [None]
  - URINARY TRACT INFECTION [None]
  - VARICOSE VEIN [None]
  - VERTIGO [None]
  - WEIGHT DECREASED [None]
